FAERS Safety Report 24063804 (Version 5)
Quarter: 2025Q1

REPORT INFORMATION
  Report Type: Spontaneous
  Country: DE (occurrence: DE)
  Receive Date: 20240709
  Receipt Date: 20250106
  Transmission Date: 20250409
  Serious: Yes (Hospitalization)
  Sender: ALKEM
  Company Number: DE-ALKEM LABORATORIES LIMITED-DE-ALKEM-2024-14652

PATIENT
  Age: 39 Year
  Sex: Female

DRUGS (12)
  1. METHYLPHENIDATE HYDROCHLORIDE [Suspect]
     Active Substance: METHYLPHENIDATE HYDROCHLORIDE
     Indication: Product used for unknown indication
     Route: 065
  2. METHYLPHENIDATE HYDROCHLORIDE [Suspect]
     Active Substance: METHYLPHENIDATE HYDROCHLORIDE
     Route: 065
  3. OLANZAPINE [Suspect]
     Active Substance: OLANZAPINE
     Indication: Product used for unknown indication
     Route: 065
  4. PREGABALIN [Suspect]
     Active Substance: PREGABALIN
     Indication: Product used for unknown indication
     Route: 065
  5. PREGABALIN [Suspect]
     Active Substance: PREGABALIN
     Route: 065
  6. QUETIAPINE FUMARATE [Suspect]
     Active Substance: QUETIAPINE FUMARATE
     Indication: Product used for unknown indication
     Route: 065
  7. QUETIAPINE FUMARATE [Suspect]
     Active Substance: QUETIAPINE FUMARATE
     Route: 065
  8. .ALPHA.-PYRROLIDINOISOHEXANOPHENONE [Suspect]
     Active Substance: .ALPHA.-PYRROLIDINOISOHEXANOPHENONE
     Indication: Product used for unknown indication
     Route: 065
  9. BUPRENORPHINE [Suspect]
     Active Substance: BUPRENORPHINE
     Indication: Product used for unknown indication
     Route: 065
  10. LORAZEPAM [Suspect]
     Active Substance: LORAZEPAM
     Indication: Product used for unknown indication
     Route: 065
  11. METHYLENEDIOXYPYRROLIDINOHEXIOPHENONE [Suspect]
     Active Substance: METHYLENEDIOXYPYRROLIDINOHEXIOPHENONE
     Indication: Product used for unknown indication
     Route: 065
  12. NORBUPRENORPHINE [Suspect]
     Active Substance: NORBUPRENORPHINE
     Indication: Product used for unknown indication
     Route: 065

REACTIONS (4)
  - Abnormal behaviour [Unknown]
  - Mental disorder [Unknown]
  - Screaming [Unknown]
  - Aggression [Unknown]
